FAERS Safety Report 18013458 (Version 7)
Quarter: 2024Q3

REPORT INFORMATION
  Report Type: Report from Study
  Country: US (occurrence: US)
  Receive Date: 20200713
  Receipt Date: 20240831
  Transmission Date: 20241016
  Serious: Yes (Other)
  Sender: TAKEDA
  Company Number: US-SHIRE-US202022358

PATIENT
  Sex: Female
  Weight: 76 kg

DRUGS (40)
  1. HUMAN IMMUNOGLOBULIN G [Suspect]
     Active Substance: HUMAN IMMUNOGLOBULIN G
     Indication: Immunodeficiency common variable
     Dosage: 8 GRAM, 1/WEEK
     Route: 058
     Dates: start: 20131217
  2. HUMAN IMMUNOGLOBULIN G [Suspect]
     Active Substance: HUMAN IMMUNOGLOBULIN G
     Dosage: 8 GRAM, 1/WEEK
     Route: 058
     Dates: start: 20131219
  3. DIPHENHYDRAMINE [Concomitant]
     Active Substance: DIPHENHYDRAMINE
     Indication: Product used for unknown indication
  4. METOPROLOL SUCCINATE [Concomitant]
     Active Substance: METOPROLOL SUCCINATE
     Indication: Product used for unknown indication
  5. EPINEPHRINE [Concomitant]
     Active Substance: EPINEPHRINE
     Indication: Product used for unknown indication
  6. ROPINIROLE HYDROCHLORIDE [Concomitant]
     Active Substance: ROPINIROLE HYDROCHLORIDE
     Indication: Product used for unknown indication
  7. ATORVASTATIN CALCIUM [Concomitant]
     Active Substance: ATORVASTATIN CALCIUM
     Indication: Product used for unknown indication
  8. MAGNESIUM [Concomitant]
     Active Substance: MAGNESIUM
  9. PROLIA [Concomitant]
     Active Substance: DENOSUMAB
  10. FLUOROURACIL [Concomitant]
     Active Substance: FLUOROURACIL
     Indication: Product used for unknown indication
  11. CRANBERRY [Concomitant]
     Active Substance: CRANBERRY
     Indication: Product used for unknown indication
  12. IRON [Concomitant]
     Active Substance: IRON
     Indication: Product used for unknown indication
  13. OMEPRAZOLE [Concomitant]
     Active Substance: OMEPRAZOLE
     Indication: Product used for unknown indication
  14. ACETAMINOPHEN [Concomitant]
     Active Substance: ACETAMINOPHEN
     Indication: Product used for unknown indication
  15. TYLENOL EXTRA STRENGTH [Concomitant]
     Active Substance: ACETAMINOPHEN
     Indication: Product used for unknown indication
  16. CALTRATE [Concomitant]
     Active Substance: CALCIUM CARBONATE
     Indication: Product used for unknown indication
  17. POTASSIUM GLUCONATE [Concomitant]
     Active Substance: POTASSIUM GLUCONATE
     Indication: Product used for unknown indication
  18. CETIRIZINE HCL [Concomitant]
     Active Substance: CETIRIZINE HYDROCHLORIDE
     Indication: Product used for unknown indication
  19. MUCINEX [Concomitant]
     Active Substance: GUAIFENESIN
     Indication: Product used for unknown indication
  20. MUPIROCIN [Concomitant]
     Active Substance: MUPIROCIN
     Indication: Product used for unknown indication
  21. SYMBICORT [Concomitant]
     Active Substance: BUDESONIDE\FORMOTEROL FUMARATE DIHYDRATE
     Indication: Product used for unknown indication
  22. LIDOCAINE [Concomitant]
     Active Substance: LIDOCAINE
     Indication: Product used for unknown indication
  23. NORTRIPTYLINE HYDROCHLORIDE [Concomitant]
     Active Substance: NORTRIPTYLINE HYDROCHLORIDE
     Indication: Product used for unknown indication
     Dosage: UNK
  24. GABAPENTIN [Concomitant]
     Active Substance: GABAPENTIN
     Indication: Product used for unknown indication
  25. TYLENOL [Concomitant]
     Active Substance: ACETAMINOPHEN
     Indication: Product used for unknown indication
  26. POTASSIUM [Concomitant]
     Active Substance: POTASSIUM
     Indication: Product used for unknown indication
  27. HYDRALAZINE [Concomitant]
     Active Substance: HYDRALAZINE HYDROCHLORIDE
     Indication: Product used for unknown indication
  28. FLUTICASONE [Concomitant]
     Active Substance: FLUTICASONE
     Indication: Product used for unknown indication
  29. METOPROLOL [Concomitant]
     Active Substance: METOPROLOL
     Indication: Product used for unknown indication
  30. PROAIR HFA [Concomitant]
     Active Substance: ALBUTEROL SULFATE
     Indication: Product used for unknown indication
  31. VENTOLIN HFA [Concomitant]
     Active Substance: ALBUTEROL SULFATE
     Indication: Product used for unknown indication
  32. ALBUTEROL [Concomitant]
     Active Substance: ALBUTEROL
  33. HYDRALAZINE HCL [Concomitant]
     Active Substance: HYDRALAZINE HYDROCHLORIDE
  34. ALBUTEROL SULFATE [Concomitant]
     Active Substance: ALBUTEROL SULFATE
  35. CALTRATE WITH VITAMIN D [Concomitant]
     Active Substance: CALCIUM CARBONATE\CHOLECALCIFEROL
  36. DIPHENHYDRAMINE HYDROCHLORIDE [Concomitant]
     Active Substance: DIPHENHYDRAMINE HYDROCHLORIDE
     Dosage: UNK
     Route: 065
  37. VITAMIN C [Concomitant]
     Active Substance: ASCORBIC ACID
     Dosage: UNK
     Route: 065
  38. IPRATROPIUM BROMIDE [Concomitant]
     Active Substance: IPRATROPIUM BROMIDE\IPRATROPIUM BROMIDE ANHYDROUS
     Dosage: UNK
     Route: 065
  39. FAMOTIDINE [Concomitant]
     Active Substance: FAMOTIDINE
     Dosage: UNK
     Route: 065
  40. BREYNA [Concomitant]
     Active Substance: BUDESONIDE\FORMOTEROL FUMARATE

REACTIONS (8)
  - Pneumonia [Not Recovered/Not Resolved]
  - Viral infection [Unknown]
  - COVID-19 [Not Recovered/Not Resolved]
  - Nasopharyngitis [Unknown]
  - Seasonal allergy [Not Recovered/Not Resolved]
  - Allergy to animal [Unknown]
  - Pain [Unknown]
  - Cough [Unknown]
